FAERS Safety Report 5891771-6 (Version None)
Quarter: 2008Q3

REPORT INFORMATION
  Report Type: 
  Country: None (occurrence: None)
  Receive Date: 20080922
  Receipt Date: 20080912
  Transmission Date: 20090109
  Serious: Yes (Other)
  Sender: FDA-Public Use
  Company Number: US-ABBOTT-08P-163-0476197-00

PATIENT
  Age: 55 Year
  Sex: Male

DRUGS (3)
  1. LEXAPRO [Suspect]
     Indication: DEPRESSION
     Route: 048
     Dates: start: 20060101
  2. MEDICATION FOR LIPIDS [Suspect]
     Indication: HYPERLIPIDAEMIA
  3. CLONAZEPAM [Concomitant]
     Indication: ANXIETY

REACTIONS (1)
  - HEPATIC ENZYME INCREASED [None]
